FAERS Safety Report 18021888 (Version 1)
Quarter: 2020Q3

REPORT INFORMATION
  Report Type: Spontaneous
  Country: GB (occurrence: GB)
  Receive Date: 20200714
  Receipt Date: 20200714
  Transmission Date: 20201103
  Serious: Yes (Hospitalization, Disabling, Other)
  Sender: FDA-Public Use
  Company Number: GB-PFIZER INC-2020265437

PATIENT
  Age: 54 Year
  Sex: Male
  Weight: 105.22 kg

DRUGS (4)
  1. BISOPROLOL FUMARATE. [Concomitant]
     Active Substance: BISOPROLOL FUMARATE
  2. ATORVASTATIN CALCIUM. [Suspect]
     Active Substance: ATORVASTATIN CALCIUM
     Dosage: 80 MG
     Route: 048
     Dates: start: 20160716, end: 20200209
  3. RAMIPRIL. [Concomitant]
     Active Substance: RAMIPRIL
  4. ASPIRIN (E.C.) [Concomitant]
     Active Substance: ASPIRIN

REACTIONS (10)
  - Presyncope [Unknown]
  - Necrotising myositis [Not Recovered/Not Resolved]
  - Dysphagia [Unknown]
  - Muscle atrophy [Unknown]
  - Hepatic enzyme abnormal [Unknown]
  - Asthenia [Unknown]
  - Abnormal loss of weight [Unknown]
  - Lymphadenopathy [Unknown]
  - Dysphonia [Unknown]
  - Pulmonary mass [Unknown]

NARRATIVE: CASE EVENT DATE: 20191022
